FAERS Safety Report 12743958 (Version 1)
Quarter: 2016Q3

REPORT INFORMATION
  Report Type: Spontaneous
  Country: UG (occurrence: UG)
  Receive Date: 20160914
  Receipt Date: 20160914
  Transmission Date: 20161109
  Serious: Yes (Other)
  Sender: FDA-Public Use
  Company Number: UG-ASTRAZENECA-2016SE95609

PATIENT
  Age: 45 Year
  Sex: Female

DRUGS (5)
  1. MEROPENEM. [Suspect]
     Active Substance: MEROPENEM
     Indication: BACTERIAL SEPSIS
     Route: 042
     Dates: start: 20160810
  2. CLEXANE [Concomitant]
     Active Substance: ENOXAPARIN SODIUM
     Indication: PULMONARY EMBOLISM
     Route: 058
     Dates: start: 20160810
  3. HEPARIN [Concomitant]
     Active Substance: HEPARIN SODIUM
  4. CLEXANE [Concomitant]
     Active Substance: ENOXAPARIN SODIUM
     Indication: BACTERIAL SEPSIS
     Route: 058
     Dates: start: 20160810
  5. MEROPENEM. [Suspect]
     Active Substance: MEROPENEM
     Indication: PULMONARY EMBOLISM
     Route: 042
     Dates: start: 20160810

REACTIONS (2)
  - Pneumocystis jirovecii pneumonia [Unknown]
  - Dyspnoea [Unknown]

NARRATIVE: CASE EVENT DATE: 20160811
